FAERS Safety Report 12783384 (Version 10)
Quarter: 2017Q4

REPORT INFORMATION
  Report Type: Spontaneous
  Country: US (occurrence: US)
  Receive Date: 20160927
  Receipt Date: 20171221
  Transmission Date: 20180320
  Serious: Yes (Hospitalization)
  Sender: FDA-Public Use
  Company Number: US-ACTELION-A-US2016-142760

PATIENT
  Age: 50 Year
  Sex: Male
  Weight: 74.83 kg

DRUGS (4)
  1. VELETRI [Suspect]
     Active Substance: EPOPROSTENOL
     Dosage: 20 NG/KG, PER MIN
     Route: 042
     Dates: start: 20150910
  2. VELETRI [Suspect]
     Active Substance: EPOPROSTENOL
     Indication: PULMONARY HYPERTENSION
     Dosage: 19 NG/KG, PER MIN
     Route: 042
     Dates: start: 20150910
  3. REVATIO [Concomitant]
     Active Substance: SILDENAFIL CITRATE
  4. COUMADIN [Concomitant]
     Active Substance: WARFARIN SODIUM

REACTIONS (10)
  - Haemoglobin decreased [Unknown]
  - Fluid overload [Unknown]
  - Ascites [Unknown]
  - Musculoskeletal pain [Unknown]
  - Paracentesis [Unknown]
  - Diarrhoea [Unknown]
  - Pain in extremity [Unknown]
  - Quality of life decreased [Unknown]
  - Transfusion [Unknown]
  - Headache [Unknown]
